FAERS Safety Report 6935720-8 (Version None)
Quarter: 2010Q3

REPORT INFORMATION
  Report Type: 
  Country: None (occurrence: None)
  Receive Date: 20100817
  Receipt Date: 20100802
  Transmission Date: 20110219
  Serious: Yes (Death, Other)
  Sender: FDA-Public Use
  Company Number: 2010AP001636

PATIENT
  Age: 38 Year
  Sex: Male

DRUGS (5)
  1. CITALOPRAM HYDROBROMIDE [Suspect]
  2. METHADONE (METADONE) [Suspect]
  3. TETRAHYDROCANNABINOL (TETRAHYDROCANNABINOL) [Suspect]
  4. DIAZEPAM [Suspect]
  5. TEMAZEPAM [Suspect]

REACTIONS (4)
  - DRUG INTERACTION [None]
  - DRUG TOXICITY [None]
  - PULMONARY CONGESTION [None]
  - SEROTONIN SYNDROME [None]
